FAERS Safety Report 23271381 (Version 1)
Quarter: 2023Q4

REPORT INFORMATION
  Report Type: Report from Study
  Country: US (occurrence: US)
  Receive Date: 20231207
  Receipt Date: 20231207
  Transmission Date: 20240110
  Serious: No
  Sender: FDA-Public Use
  Company Number: US-ALXN-A202304788

PATIENT
  Sex: Female
  Weight: 58.6 kg

DRUGS (1)
  1. STRENSIQ [Suspect]
     Active Substance: ASFOTASE ALFA
     Indication: Hypophosphatasia
     Dosage: UNK, TWICE A WEEK
     Route: 058

REACTIONS (2)
  - Off label use [Unknown]
  - Injection site pain [Unknown]
